FAERS Safety Report 9919213 (Version 2)
Quarter: 2014Q4

REPORT INFORMATION
  Report Type: Spontaneous
  Country: US (occurrence: US)
  Receive Date: 20140224
  Receipt Date: 20141210
  Transmission Date: 20150529
  Serious: Yes (Hospitalization, Other)
  Sender: FDA-Public Use
  Company Number: US-PFIZER INC-2014048484

PATIENT
  Age: 62 Year
  Sex: Female
  Weight: 64 kg

DRUGS (1)
  1. ESTRING [Suspect]
     Active Substance: ESTRADIOL
     Indication: ATROPHIC VULVOVAGINITIS
     Dosage: 2 MG, EVERY 90 DAYS
     Route: 067
     Dates: start: 20130516

REACTIONS (3)
  - Vaginal haemorrhage [Unknown]
  - Vaginal odour [Unknown]
  - Uterine polyp [Recovered/Resolved]

NARRATIVE: CASE EVENT DATE: 20141120
